FAERS Safety Report 5162189-9 (Version None)
Quarter: 2006Q4

REPORT INFORMATION
  Report Type: 
  Country: None (occurrence: None)
  Receive Date: 20061121
  Receipt Date: 20061106
  Transmission Date: 20070319
  Serious: Yes (Hospitalization)
  Sender: FDA-Public Use
  Company Number: FR-SOLVAY-00306003583

PATIENT
  Age: 43 Year
  Sex: Female

DRUGS (5)
  1. ROWASA [Suspect]
     Indication: ENTEROCOLITIS HAEMORRHAGIC
     Dosage: 500 MILLIGRAM (S) RECTAL
     Route: 054
  2. ROWASA [Suspect]
     Indication: ENTEROCOLITIS HAEMORRHAGIC
     Dosage: 2000 MILLIGRAM (S), ORAL
     Route: 048
  3. XELODA [Suspect]
     Indication: RECTAL CANCER
     Dosage: 2900 MILLIGRAM (S),
  4. RADIOTHERAPY (RADIOTHERAPY) [Suspect]
     Indication: RECTAL CANCER
     Dates: start: 20060727, end: 20060901
  5. METEOXANE (SIMETICONE, PHLOROGLUCINOL) [Concomitant]

REACTIONS (3)
  - FEMALE GENITAL TRACT FISTULA [None]
  - INTESTINAL PERFORATION [None]
  - RECTAL CANCER [None]
